FAERS Safety Report 5797245-5 (Version None)
Quarter: 2008Q3

REPORT INFORMATION
  Report Type: 
  Country: None (occurrence: None)
  Receive Date: 20080701
  Receipt Date: 20080625
  Transmission Date: 20090109
  Serious: Yes (Hospitalization)
  Sender: FDA-Public Use
  Company Number: US-MERCK-0806USA01337

PATIENT
  Age: 72 Year
  Sex: Male

DRUGS (6)
  1. JANUVIA [Suspect]
     Indication: DIABETES MELLITUS
     Route: 048
  2. DIOVAN [Concomitant]
     Route: 048
  3. ACTOS [Concomitant]
     Route: 048
  4. METFORMIN [Concomitant]
     Route: 048
  5. METOPROLOL [Concomitant]
     Route: 065
  6. LIPITOR [Concomitant]
     Route: 065

REACTIONS (3)
  - CONVULSION [None]
  - TONGUE BITING [None]
  - VISUAL IMPAIRMENT [None]
